FAERS Safety Report 8338737-4 (Version None)
Quarter: 2012Q2

REPORT INFORMATION
  Report Type: 
  Country: None (occurrence: None)
  Receive Date: 20120504
  Receipt Date: 20120420
  Transmission Date: 20120825
  Serious: Yes (Other)
  Sender: FDA-Public Use
  Company Number: CHPA2012US009763

PATIENT
  Age: 77 Year
  Sex: Female

DRUGS (2)
  1. ASPIRIN [Concomitant]
  2. EXCEDRIN EXTRA STRENGTH TABLETS [Suspect]
     Indication: RHEUMATOID ARTHRITIS
     Dosage: 1-2 PILLS, AS NEEDED
     Route: 048
     Dates: end: 20120201

REACTIONS (3)
  - RHEUMATOID ARTHRITIS [None]
  - BREAST CANCER [None]
  - UNDERDOSE [None]
